FAERS Safety Report 5576747-0 (Version None)
Quarter: 2007Q4

REPORT INFORMATION
  Report Type: 
  Country: None (occurrence: None)
  Receive Date: 20071228
  Receipt Date: 20071220
  Transmission Date: 20080405
  Serious: Yes (Other)
  Sender: FDA-Public Use
  Company Number: US-JNJFOC-20071205713

PATIENT
  Sex: Female
  Weight: 94 kg

DRUGS (10)
  1. TOPAMAX [Suspect]
     Indication: CYCLIC VOMITING SYNDROME
     Route: 048
  2. TOPAMAX [Suspect]
     Indication: MIGRAINE PROPHYLAXIS
     Route: 048
  3. SEROQUEL [Concomitant]
     Indication: DRUG USE FOR UNKNOWN INDICATION
     Route: 048
  4. ABILIFY [Concomitant]
     Indication: DRUG USE FOR UNKNOWN INDICATION
  5. KLONOPIN [Concomitant]
     Indication: DRUG USE FOR UNKNOWN INDICATION
     Route: 048
  6. MIRALEX [Concomitant]
     Indication: CONSTIPATION
     Route: 048
  7. DEPO-PROVERA [Concomitant]
     Indication: CONTRACEPTION
     Route: 030
  8. AMITRIPTYLINE HCL [Concomitant]
     Indication: CYCLIC VOMITING SYNDROME
     Route: 048
  9. ZOFRAN [Concomitant]
     Indication: CYCLIC VOMITING SYNDROME
     Route: 048
  10. FROVA [Concomitant]
     Indication: CYCLIC VOMITING SYNDROME
     Route: 048

REACTIONS (2)
  - CYSTITIS [None]
  - SOMNAMBULISM [None]
